FAERS Safety Report 6477068-4 (Version None)
Quarter: 2009Q4

REPORT INFORMATION
  Report Type: 
  Country: None (occurrence: None)
  Receive Date: 20091202
  Receipt Date: 20091118
  Transmission Date: 20100525
  Serious: Yes (Hospitalization)
  Sender: FDA-Public Use
  Company Number: 8054449

PATIENT
  Age: 71 Year
  Sex: Female

DRUGS (5)
  1. KEPPRA [Suspect]
     Indication: EPILEPSY
     Dosage: 500 MG /D PO
     Route: 048
  2. ABILIFY [Suspect]
     Indication: DEMENTIA
     Dosage: 40 MG /D PO
     Route: 048
     Dates: start: 20090701
  3. ABILIFY [Suspect]
     Indication: DEMENTIA
     Dosage: 30 MG /D PO
     Route: 048
  4. TEGRETOL [Suspect]
     Indication: EPILEPSY
     Dosage: 400 MG /D PO
     Route: 048
  5. AMLOR [Suspect]
     Indication: HYPERTENSION
     Dosage: PO
     Route: 048

REACTIONS (9)
  - AGITATION [None]
  - BLOOD CREATINE PHOSPHOKINASE INCREASED [None]
  - HAEMATOMA [None]
  - HYPOTENSION [None]
  - MUSCULOSKELETAL STIFFNESS [None]
  - MYALGIA [None]
  - MYOGLOBIN BLOOD INCREASED [None]
  - NEUROLEPTIC MALIGNANT SYNDROME [None]
  - OFF LABEL USE [None]
